FAERS Safety Report 6411265-9 (Version None)
Quarter: 2009Q4

REPORT INFORMATION
  Report Type: 
  Country: None (occurrence: None)
  Receive Date: 20091020
  Receipt Date: 20091013
  Transmission Date: 20100525
  Serious: Yes (Other)
  Sender: FDA-Public Use
  Company Number: JHP200900321

PATIENT
  Age: 81 Year
  Sex: Female

DRUGS (8)
  1. EPINEPHRINE [Suspect]
     Indication: ANAPHYLACTIC REACTION
     Dosage: 0.5 MG, SINGLE, INTRAMUSCULAR
     Route: 030
  2. ASPIRIN [Concomitant]
  3. ATENOLOL [Concomitant]
  4. BENDROFLUMETHAZIDE [Concomitant]
  5. ATORVASTATIN CALCIUM [Concomitant]
  6. OMEPRAZOLE [Concomitant]
  7. HYDROCORTISONE (HYDROCORTISONE HYDROGEN SUCCINATE) [Concomitant]
  8. CHLORPHENIRAMINE TAB [Concomitant]

REACTIONS (3)
  - CORONARY ARTERY STENOSIS [None]
  - MYOCARDIAL ISCHAEMIA [None]
  - SINUS TACHYCARDIA [None]
